FAERS Safety Report 8108018-2 (Version None)
Quarter: 2012Q1

REPORT INFORMATION
  Report Type: 
  Country: None (occurrence: None)
  Receive Date: 20120202
  Receipt Date: 20120131
  Transmission Date: 20120608
  Serious: Yes (Other)
  Sender: FDA-Public Use
  Company Number: US-ACTELION-A-NJ2012-59491

PATIENT

DRUGS (3)
  1. RENAGEL [Concomitant]
  2. TRACLEER [Suspect]
     Indication: PULMONARY ARTERIAL HYPERTENSION
     Dosage: 62.5 MG, BID
     Route: 048
     Dates: start: 20090417
  3. EXELON [Concomitant]

REACTIONS (5)
  - DIALYSIS [None]
  - FATIGUE [None]
  - OEDEMA [None]
  - DYSPNOEA [None]
  - ASTHENIA [None]
